FAERS Safety Report 17459498 (Version 10)
Quarter: 2024Q3

REPORT INFORMATION
  Report Type: Spontaneous
  Country: LT (occurrence: LT)
  Receive Date: 20200226
  Receipt Date: 20240829
  Transmission Date: 20241017
  Serious: Yes (Hospitalization, Other)
  Sender: MYLAN
  Company Number: LT-MYLANLABS-2020M1020370

PATIENT
  Age: 32 Year
  Sex: Male

DRUGS (47)
  1. OLANZAPINE [Suspect]
     Active Substance: OLANZAPINE
     Indication: Schizophrenia
     Dosage: UNK
     Route: 065
  2. OLANZAPINE [Suspect]
     Active Substance: OLANZAPINE
     Indication: Schizophrenia
     Dosage: UNK
     Route: 065
  3. LERCANIDIPINE [Suspect]
     Active Substance: LERCANIDIPINE
     Indication: Product used for unknown indication
     Dosage: 10 MILLIGRAM, QD
     Route: 065
  4. CLOZAPINE [Interacting]
     Active Substance: CLOZAPINE
     Indication: Schizophrenia
     Dosage: 50 MILLIGRAM, QD
     Route: 065
  5. CLOZAPINE [Interacting]
     Active Substance: CLOZAPINE
     Dosage: UNK
     Route: 065
  6. CLOZAPINE [Interacting]
     Active Substance: CLOZAPINE
     Dosage: 50 MG, PER DAY
     Route: 065
  7. METOPROLOL [Suspect]
     Active Substance: METOPROLOL
     Indication: Product used for unknown indication
     Dosage: 47.5 MILLIGRAM, QD IN THE MORNING
     Route: 065
  8. METOPROLOL [Suspect]
     Active Substance: METOPROLOL
     Dosage: 47.5 MILLIGRAM
     Route: 065
  9. METOPROLOL [Suspect]
     Active Substance: METOPROLOL
     Dosage: 150 MILLIGRAM, QD
     Route: 065
  10. METOPROLOL [Suspect]
     Active Substance: METOPROLOL
     Dosage: 47.5 MG
     Route: 065
  11. DOXAZOSIN [Suspect]
     Active Substance: DOXAZOSIN MESYLATE
     Indication: Product used for unknown indication
     Dosage: 4 MILLIGRAM, QD BEFORE SLEEP
     Route: 065
  12. DOXAZOSIN [Suspect]
     Active Substance: DOXAZOSIN MESYLATE
     Dosage: 4 MILLIGRAM, QD
     Route: 065
  13. MYCOPHENOLATE MOFETIL [Interacting]
     Active Substance: MYCOPHENOLATE MOFETIL
     Indication: Immunosuppression
     Dosage: 3000 MILLIGRAM, QD 500 MILLIGRAM (IN MORNING); 1000 MG (IN EVENING)
     Route: 065
  14. MYCOPHENOLATE MOFETIL [Interacting]
     Active Substance: MYCOPHENOLATE MOFETIL
     Dosage: 1000 MILLIGRAM, BID MORNING AND EVENING
     Route: 065
  15. MYCOPHENOLATE MOFETIL [Interacting]
     Active Substance: MYCOPHENOLATE MOFETIL
     Dosage: 500 MILLIGRAM, BID 500 MG IN THE MORNING
     Route: 065
  16. MYCOPHENOLATE MOFETIL [Interacting]
     Active Substance: MYCOPHENOLATE MOFETIL
     Dosage: 500 MG QD  IN THE MORNING
     Route: 065
  17. MYCOPHENOLATE MOFETIL [Interacting]
     Active Substance: MYCOPHENOLATE MOFETIL
     Dosage: 1000 MG QD IN THE EVENING
     Route: 065
  18. QUETIAPINE [Suspect]
     Active Substance: QUETIAPINE
     Indication: Schizophrenia
     Dosage: UPTO 150 MG PER DAY
     Route: 065
  19. QUETIAPINE [Suspect]
     Active Substance: QUETIAPINE
     Dosage: 150 MILLIGRAM, QD, UPTO 150 PER DAY
     Route: 065
     Dates: start: 2018
  20. QUETIAPINE [Suspect]
     Active Substance: QUETIAPINE
     Dosage: 400 MG AND DOSE INCREASED TO 700 MG
     Route: 065
  21. QUETIAPINE [Suspect]
     Active Substance: QUETIAPINE
     Indication: Product used for unknown indication
     Dosage: 400 MILLIGRAM, DOSE INCREASED TO 700 MG
     Route: 065
  22. AMLODIPINE [Suspect]
     Active Substance: AMLODIPINE BESYLATE
     Indication: Product used for unknown indication
     Dosage: 10 MILLIGRAM, QD
     Route: 065
  23. TACROLIMUS [Interacting]
     Active Substance: TACROLIMUS
     Indication: Immunosuppression
     Dosage: 6 MILLIGRAM, QD
     Route: 065
  24. MOXONIDINE [Suspect]
     Active Substance: MOXONIDINE
     Indication: Product used for unknown indication
     Dosage: 0.4 MILLIGRAM, QD
     Route: 065
  25. TIAPRIDE [Suspect]
     Active Substance: TIAPRIDE
     Indication: Schizophrenia
     Dosage: 100 MILLIGRAM, QD
     Route: 065
  26. TIAPRIDE [Suspect]
     Active Substance: TIAPRIDE
     Dosage: 150 MG, PER DAY
     Route: 065
     Dates: start: 2018
  27. FOSINOPRIL [Suspect]
     Active Substance: FOSINOPRIL
     Indication: Product used for unknown indication
     Dosage: 10 MILLIGRAM, QD
     Route: 065
  28. FOSINOPRIL [Suspect]
     Active Substance: FOSINOPRIL
     Dosage: 10 MG, 2X PER DAY
     Route: 065
  29. ALLOPURINOL [Suspect]
     Active Substance: ALLOPURINOL
     Indication: Product used for unknown indication
     Dosage: 100 MILLIGRAM, QD IN THE MORNING
     Route: 065
  30. ALLOPURINOL [Suspect]
     Active Substance: ALLOPURINOL
     Dosage: 100 MILLIGRAM, QD EVERY MORNING
     Route: 065
  31. PALIPERIDONE [Interacting]
     Active Substance: PALIPERIDONE
     Indication: Schizophrenia
     Dosage: 100 MILLIGRAM, MONTHLY
     Route: 065
  32. PALIPERIDONE [Interacting]
     Active Substance: PALIPERIDONE
     Dosage: 100 MG, 1X PER MONTH
     Route: 065
  33. RISPERDAL [Suspect]
     Active Substance: RISPERIDONE
     Indication: Schizophrenia
     Dosage: UNK
     Route: 065
  34. METHYLPREDNISOLONE [Interacting]
     Active Substance: METHYLPREDNISOLONE
     Indication: Immunosuppression
     Dosage: UNK
     Route: 065
  35. METHYLPREDNISOLONE [Interacting]
     Active Substance: METHYLPREDNISOLONE
     Dosage: 8 MILLIGRAM, BID
     Route: 065
  36. METHYLPREDNISOLONE [Interacting]
     Active Substance: METHYLPREDNISOLONE
     Dosage: 4 MILLIGRAM, QD, EVERY MORNING
     Route: 065
  37. VALGANCICLOVIR [Suspect]
     Active Substance: VALGANCICLOVIR
     Indication: Product used for unknown indication
     Dosage: 450 MG, PER DAY
     Route: 065
  38. VALGANCICLOVIR [Suspect]
     Active Substance: VALGANCICLOVIR
     Dosage: UNK
     Route: 065
  39. METOPROLOL SUCCINATE [Suspect]
     Active Substance: METOPROLOL SUCCINATE
     Indication: Product used for unknown indication
     Dosage: 150 MILLIGRAM, QD
     Route: 065
  40. METOPROLOL SUCCINATE [Suspect]
     Active Substance: METOPROLOL SUCCINATE
     Dosage: 150 MG, QD
     Route: 065
  41. METOPROLOL SUCCINATE [Suspect]
     Active Substance: METOPROLOL SUCCINATE
     Dosage: REDUCED DOSE
     Route: 065
  42. METHYLPREDNISOLONE [Interacting]
     Active Substance: METHYLPREDNISOLONE
     Indication: Product used for unknown indication
     Dosage: 16 MILLIGRAM, QD, 8 MG, BID
     Route: 065
  43. RISPERIDONE [Suspect]
     Active Substance: RISPERIDONE
     Indication: Schizophrenia
     Dosage: UNK
     Route: 065
  44. DOXAZOSIN [Concomitant]
     Active Substance: DOXAZOSIN MESYLATE
     Indication: Product used for unknown indication
     Dosage: 4 MILLIGRAM, QD
     Route: 065
  45. DOXAZOSIN [Concomitant]
     Active Substance: DOXAZOSIN MESYLATE
     Dosage: BEFORE SLEEP
     Route: 065
  46. OMEPRAZOLE [Concomitant]
     Active Substance: OMEPRAZOLE
     Indication: Product used for unknown indication
     Dosage: 20 MILLIGRAM, QD
     Route: 065
  47. OMEPRAZOLE [Concomitant]
     Active Substance: OMEPRAZOLE
     Dosage: 20 MILLIGRAM
     Route: 065

REACTIONS (17)
  - Drug resistance [Unknown]
  - Therapeutic response changed [Recovered/Resolved]
  - Neuroleptic malignant syndrome [Unknown]
  - Schizophrenia [Unknown]
  - Behaviour disorder [Recovered/Resolved]
  - Condition aggravated [Recovered/Resolved]
  - Confusional state [Unknown]
  - Loss of consciousness [Unknown]
  - Paradoxical drug reaction [Unknown]
  - Asthenia [Unknown]
  - Drug interaction [Unknown]
  - Drug ineffective [Unknown]
  - Insomnia [Recovered/Resolved]
  - Thinking abnormal [Not Recovered/Not Resolved]
  - Apathy [Recovered/Resolved]
  - Delusion [Recovered/Resolved]
  - Inappropriate affect [Unknown]
